FAERS Safety Report 5638661-1 (Version None)
Quarter: 2008Q1

REPORT INFORMATION
  Report Type: 
  Country: None (occurrence: None)
  Receive Date: 20080226
  Receipt Date: 20080128
  Transmission Date: 20080703
  Serious: No
  Sender: FDA-Public Use
  Company Number: A0681453A

PATIENT
  Sex: Female

DRUGS (8)
  1. IMITREX [Suspect]
     Indication: MIGRAINE
     Dosage: 6MG AS REQUIRED
     Route: 058
  2. GABAPENTIN [Concomitant]
  3. CLONAZEPAM [Concomitant]
  4. FEXOFENADINE [Concomitant]
  5. PROVIGIL [Concomitant]
  6. MICROGESTIN FE [Concomitant]
  7. ASMANEX TWISTHALER [Concomitant]
  8. ALBUTEROL [Concomitant]

REACTIONS (3)
  - DRUG INEFFECTIVE [None]
  - INJECTION SITE PAIN [None]
  - PHARMACEUTICAL PRODUCT COMPLAINT [None]
